APPROVED DRUG PRODUCT: RANITIDINE HYDROCHLORIDE
Active Ingredient: RANITIDINE HYDROCHLORIDE
Strength: EQ 300MG BASE
Dosage Form/Route: TABLET;ORAL
Application: A075165 | Product #002
Applicant: HERITAGE PHARMA LABS INC DBA AVET PHARMACEUTICALS LABS INC
Approved: Sep 30, 1998 | RLD: No | RS: No | Type: DISCN